FAERS Safety Report 6239497-3 (Version None)
Quarter: 2009Q2

REPORT INFORMATION
  Report Type: 
  Country: None (occurrence: None)
  Receive Date: 20090622
  Receipt Date: 20090615
  Transmission Date: 20091009
  Serious: Yes (Hospitalization, Other)
  Sender: FDA-Public Use
  Company Number: BR-AVENTIS-200915999GDDC

PATIENT
  Age: 73 Year
  Sex: Female
  Weight: 88 kg

DRUGS (5)
  1. ALLEGRA-D 12 HOUR [Suspect]
     Dosage: DOSE QUANTITY: 1
     Route: 048
     Dates: start: 20090604
  2. ATENOLOL W/CHLORTALIDONE [Concomitant]
     Indication: BLOOD PRESSURE ABNORMAL
     Dosage: DOSE QUANTITY: 2
     Route: 048
     Dates: start: 20080101
  3. ISOSORBIDE [Concomitant]
     Dosage: DOSE QUANTITY: 2
     Route: 048
     Dates: start: 20070101
  4. PAROXETINE HCL [Concomitant]
     Indication: DEPRESSION
     Dosage: DOSE QUANTITY: 2
     Route: 048
     Dates: start: 20070101
  5. TEGRETOL [Concomitant]
     Dosage: DOSE QUANTITY: 1
     Route: 048
     Dates: start: 19790101

REACTIONS (6)
  - ACUTE MYOCARDIAL INFARCTION [None]
  - CHEST PAIN [None]
  - DIZZINESS [None]
  - FEELING ABNORMAL [None]
  - NAUSEA [None]
  - VOMITING [None]
